FAERS Safety Report 7901216-X (Version None)
Quarter: 2011Q4

REPORT INFORMATION
  Report Type: 
  Country: None (occurrence: None)
  Receive Date: 20111108
  Receipt Date: 20111027
  Transmission Date: 20120403
  Serious: Yes (Hospitalization)
  Sender: FDA-Public Use
  Company Number: PHHY2011FR95513

PATIENT
  Sex: Male

DRUGS (6)
  1. ZOLPIDEM TARTRATE [Concomitant]
  2. TRILEPTAL [Suspect]
     Dosage: 2 DF, DAILY
     Route: 048
  3. PHENOBARBITAL TAB [Suspect]
     Dosage: 1 DF, DAILY
     Route: 048
  4. OMEPRAZOLE [Suspect]
     Dosage: 1 DF, QD
  5. PARASOL [Concomitant]
  6. RISPERDAL [Suspect]
     Dosage: 2 DF, DAILY
     Route: 048

REACTIONS (11)
  - DERMATITIS BULLOUS [None]
  - LYMPHADENOPATHY [None]
  - FALL [None]
  - RASH [None]
  - NEUTROPENIA [None]
  - HYPOTHERMIA [None]
  - PHOTOSENSITIVITY REACTION [None]
  - ASTHENIA [None]
  - ERYTHEMA MULTIFORME [None]
  - SKIN EXFOLIATION [None]
  - THROMBOCYTOPENIA [None]
